FAERS Safety Report 7571737-0 (Version None)
Quarter: 2011Q2

REPORT INFORMATION
  Report Type: 
  Country: None (occurrence: None)
  Receive Date: 20110624
  Receipt Date: 20110607
  Transmission Date: 20111010
  Serious: Yes (Life-Threatening, Hospitalization)
  Sender: FDA-Public Use
  Company Number: ES-PFIZER INC-2011138053

PATIENT
  Age: 48 Year
  Sex: Female

DRUGS (1)
  1. VENLAFAXINE HCL [Suspect]
     Indication: DEPRESSION

REACTIONS (7)
  - COGNITIVE DISORDER [None]
  - OVERDOSE [None]
  - COMA [None]
  - MOTOR DYSFUNCTION [None]
  - DEMENTIA [None]
  - SUICIDE ATTEMPT [None]
  - CONVULSION [None]
